FAERS Safety Report 17444467 (Version 1)
Quarter: 2020Q1

REPORT INFORMATION
  Report Type: Spontaneous
  Country: US (occurrence: US)
  Receive Date: 20200221
  Receipt Date: 20200221
  Transmission Date: 20200409
  Serious: Yes (Other)
  Sender: FDA-Public Use
  Company Number: None

PATIENT
  Age: 64 Year
  Sex: Female
  Weight: 67 kg

DRUGS (1)
  1. ERIBULIN [Suspect]
     Active Substance: ERIBULIN

REACTIONS (7)
  - Incorrect route of product administration [None]
  - Blister [None]
  - Injection site reaction [None]
  - Skin exfoliation [None]
  - Tenderness [None]
  - Injection site pain [None]
  - Wound [None]

NARRATIVE: CASE EVENT DATE: 20200210
